FAERS Safety Report 14405822 (Version 1)
Quarter: 2018Q1

REPORT INFORMATION
  Report Type: Spontaneous
  Country: CA (occurrence: CA)
  Receive Date: 20180118
  Receipt Date: 20180118
  Transmission Date: 20180509
  Serious: Yes (Other)
  Sender: FDA-Public Use
  Company Number: CA-TEVA-2018-CA-845351

PATIENT
  Age: 39 Year
  Sex: Female

DRUGS (7)
  1. CIPROFLOXACIN. [Suspect]
     Active Substance: CIPROFLOXACIN
     Indication: DIVERTICULITIS
     Dosage: 1000 MILLIGRAM DAILY;
     Route: 048
     Dates: start: 20180102
  2. MESALAMINE. [Concomitant]
     Active Substance: MESALAMINE
     Dosage: 2400 MILLIGRAM DAILY;
     Route: 048
     Dates: start: 20170628
  3. VITAMIN B12 [Concomitant]
     Active Substance: CYANOCOBALAMIN
     Dosage: EVERY WEEKLY
     Dates: start: 201704
  4. VITAMIN B6 [Concomitant]
     Active Substance: PYRIDOXINE HYDROCHLORIDE
     Dosage: WEEKLY
     Dates: start: 201704
  5. HCG [Concomitant]
     Active Substance: GONADOTROPHIN, CHORIONIC
     Dosage: WEEKLY
     Dates: start: 201704
  6. METRONIDAZOLE. [Suspect]
     Active Substance: METRONIDAZOLE
     Indication: DIVERTICULITIS
     Dosage: 1000 MILLIGRAM DAILY;
     Route: 048
     Dates: start: 20180102
  7. INFLECTRA [Concomitant]
     Active Substance: INFLIXIMAB-DYYB
     Indication: CROHN^S DISEASE
     Dosage: 400MG EVERY 0,2,6 WEEKS THEN EVERY 8 WEEKS
     Route: 042
     Dates: start: 20170828

REACTIONS (3)
  - Abnormal faeces [Unknown]
  - Gastrointestinal obstruction [Unknown]
  - Infrequent bowel movements [Unknown]

NARRATIVE: CASE EVENT DATE: 2018
